FAERS Safety Report 24126585 (Version 1)
Quarter: 2024Q3

REPORT INFORMATION
  Report Type: Spontaneous
  Country: CN (occurrence: CN)
  Receive Date: 20240723
  Receipt Date: 20240723
  Transmission Date: 20241016
  Serious: Yes (Hospitalization, Other)
  Sender: BAYER
  Company Number: CN-BAYER-2024A106364

PATIENT
  Age: 20 Year
  Sex: Female
  Weight: 45 kg

DRUGS (2)
  1. ULTRAVIST [Suspect]
     Active Substance: IOPROMIDE
     Indication: Computerised tomogram
     Dosage: 100 ML, ONCE
     Route: 042
     Dates: start: 20240718, end: 20240718
  2. ULTRAVIST [Suspect]
     Active Substance: IOPROMIDE
     Indication: Dyspepsia

REACTIONS (9)
  - Anaphylactic shock [Recovering/Resolving]
  - Diarrhoea [Recovering/Resolving]
  - Hypokalaemia [Recovered/Resolved]
  - Unresponsive to stimuli [Recovering/Resolving]
  - Rash erythematous [Recovering/Resolving]
  - Swelling of eyelid [Recovering/Resolving]
  - PO2 decreased [None]
  - Oxygen saturation decreased [Recovered/Resolved]
  - Gastrointestinal sounds abnormal [None]

NARRATIVE: CASE EVENT DATE: 20240718
